FAERS Safety Report 10657381 (Version 1)
Quarter: 2014Q4

REPORT INFORMATION
  Report Type: Spontaneous
  Country: JP (occurrence: JP)
  Receive Date: 20141217
  Receipt Date: 20141217
  Transmission Date: 20150529
  Serious: Yes (Other)
  Sender: FDA-Public Use
  Company Number: PHHY2014JP159301

PATIENT
  Age: 60 Year
  Sex: Female

DRUGS (1)
  1. ZOMETA [Suspect]
     Active Substance: ZOLEDRONIC ACID
     Indication: BREAST CANCER
     Dosage: UNK
     Route: 042

REACTIONS (5)
  - Pain in jaw [Unknown]
  - Osteomyelitis [Unknown]
  - Purulent discharge [Unknown]
  - Osteonecrosis of jaw [Recovering/Resolving]
  - Exposed bone in jaw [Unknown]
